FAERS Safety Report 8975959 (Version 4)
Quarter: 2013Q2

REPORT INFORMATION
  Report Type: Report from Study
  Country: DE (occurrence: DE)
  Receive Date: 20121219
  Receipt Date: 20130430
  Transmission Date: 20140414
  Serious: Yes (Hospitalization)
  Sender: FDA-Public Use
  Company Number: DE-GLAXOSMITHKLINE-B0853838A

PATIENT
  Age: 70 Year
  Sex: Female
  Weight: 68 kg

DRUGS (4)
  1. LAPATINIB [Suspect]
     Indication: BREAST CANCER
     Dosage: 750MG PER DAY
     Route: 048
     Dates: start: 20120903
  2. PACLITAXEL [Suspect]
     Indication: BREAST CANCER
     Dosage: 142.4MG PER DAY
     Route: 042
     Dates: start: 20120903, end: 20121210
  3. MYOCET [Suspect]
     Indication: BREAST CANCER
     Dosage: 35.6MG PER DAY
     Route: 042
     Dates: start: 20120903, end: 20121210
  4. HERCEPTIN [Suspect]
     Indication: BREAST CANCER
     Dosage: 427.8MG EVERY 3 WEEKS
     Route: 042
     Dates: start: 20120903, end: 20121203

REACTIONS (2)
  - Cardiovascular disorder [Recovered/Resolved]
  - General physical health deterioration [Recovered/Resolved]
